FAERS Safety Report 8329142-5 (Version None)
Quarter: 2012Q2

REPORT INFORMATION
  Report Type: 
  Country: None (occurrence: None)
  Receive Date: 20120502
  Receipt Date: 20120417
  Transmission Date: 20120825
  Serious: Yes (Life-Threatening, Hospitalization, Other)
  Sender: FDA-Public Use
  Company Number: US-B.I. PHARMACEUTICALS,INC./RIDGEFIELD-2012-EU-02118GD

PATIENT
  Age: 62 Year
  Sex: Female

DRUGS (6)
  1. ACETAMINOPHEN [Suspect]
     Route: 048
  2. FUROSEMIDE [Suspect]
     Dosage: 58 ANZ
     Route: 048
  3. DIXARIT [Suspect]
     Indication: HOT FLUSH
     Dosage: 42 ANZ
     Route: 048
  4. FUROSEMIDE [Suspect]
     Dosage: 40 MG
     Route: 048
  5. TAMOXIFEN CITRATE [Concomitant]
     Dosage: 20 MG
  6. DIXARIT [Suspect]
     Route: 048

REACTIONS (6)
  - BRADYCARDIA [None]
  - SUICIDE ATTEMPT [None]
  - HYPOTENSION [None]
  - HYPOTHERMIA [None]
  - MULTIPLE DRUG OVERDOSE [None]
  - LOSS OF CONSCIOUSNESS [None]
